FAERS Safety Report 17694917 (Version 1)
Quarter: 2020Q2

REPORT INFORMATION
  Report Type: Spontaneous
  Country: ES (occurrence: ES)
  Receive Date: 20200422
  Receipt Date: 20200422
  Transmission Date: 20200714
  Serious: Yes (Life-Threatening)
  Sender: FDA-Public Use
  Company Number: ES-CELGENEUS-ESP-20200406108

PATIENT
  Age: 79 Year
  Sex: Female
  Weight: 46 kg

DRUGS (19)
  1. AZACITIDINE. [Suspect]
     Active Substance: AZACITIDINE
     Indication: ACUTE MYELOID LEUKAEMIA
     Dosage: 75 MILLIGRAM/SQ. METER
     Route: 058
     Dates: start: 20181217, end: 20190314
  2. PARACETAMOL [Concomitant]
     Active Substance: ACETAMINOPHEN
     Indication: ANALGESIC THERAPY
     Route: 048
  3. TAMOXIFEN [Concomitant]
     Active Substance: TAMOXIFEN
     Indication: BREAST NEOPLASM
     Route: 048
     Dates: start: 2007
  4. MICRALAX [Concomitant]
     Indication: CONSTIPATION
     Dosage: 450 / 45 MG
     Route: 054
     Dates: start: 20190117
  5. SERUM THERAPY [Concomitant]
     Indication: NEUTROPENIA
     Route: 041
     Dates: start: 20190204
  6. AMOXICILLIN CLAVULANIC [Concomitant]
     Active Substance: AMOXICILLIN\CLAVULANIC ACID
     Indication: PRODUCT USED FOR UNKNOWN INDICATION
     Dosage: 875 / 125 MG
     Route: 048
     Dates: start: 20190201, end: 20190313
  7. PRACINOSTAT [Concomitant]
     Active Substance: PRACINOSTAT
     Indication: ACUTE MYELOID LEUKAEMIA
     Dosage: 60 MILLIGRAM
     Route: 048
     Dates: start: 20181217, end: 20190322
  8. ENANTYUM [Concomitant]
     Active Substance: DEXKETOPROFEN TROMETAMOL
     Indication: BACK PAIN
     Route: 048
     Dates: start: 20181212
  9. PUNTUALEX [Concomitant]
     Indication: CONSTIPATION
     Dosage: 150 / 5 MG/ML
     Route: 048
     Dates: start: 20181231
  10. LIDOCAINE. [Concomitant]
     Active Substance: LIDOCAINE
     Indication: ULCER
     Dosage: 300 MILLILITER
     Route: 002
     Dates: start: 20190111, end: 20190516
  11. MOVICOL [Concomitant]
     Active Substance: POLYETHYLENE GLYCOL 3350\POTASSIUM CHLORIDE\SODIUM BICARBONATE\SODIUM CHLORIDE
     Indication: CONSTIPATION
     Route: 048
     Dates: start: 20181217
  12. ORAMORPH [Concomitant]
     Active Substance: MORPHINE SULFATE
     Indication: PRODUCT USED FOR UNKNOWN INDICATION
     Route: 065
     Dates: start: 20190320
  13. ALLOPURINOL. [Concomitant]
     Active Substance: ALLOPURINOL
     Indication: TUMOUR LYSIS SYNDROME
     Dosage: 300 MILLIGRAM
     Route: 048
     Dates: start: 20181217, end: 20190724
  14. ENSURE PLUS DRINK [Concomitant]
     Indication: DECREASED APPETITE
     Dosage: 400 CC
     Route: 045
     Dates: start: 20181221
  15. DEXKETOPROFEN [Concomitant]
     Active Substance: DEXKETOPROFEN
     Indication: PAIN PROPHYLAXIS
     Route: 048
  16. MORPHINE HYDROCHLORIDE [Concomitant]
     Active Substance: MORPHINE HYDROCHLORIDE
     Indication: PAIN PROPHYLAXIS
     Route: 048
  17. LORAZEPAM. [Concomitant]
     Active Substance: LORAZEPAM
     Indication: PROPHYLAXIS
     Route: 048
  18. EMULIQUEN LAXATIVE [Concomitant]
     Indication: CONSTIPATION
     Dosage: 4.5 MILLIGRAM
     Route: 048
     Dates: start: 20181231
  19. OMEPRAZOLE. [Concomitant]
     Active Substance: OMEPRAZOLE
     Indication: FEBRILE NEUTROPENIA
     Dosage: 20 MILLIGRAM
     Route: 048
     Dates: start: 20190109

REACTIONS (1)
  - Neutropenia [Recovering/Resolving]

NARRATIVE: CASE EVENT DATE: 20190327
